FAERS Safety Report 25703170 (Version 2)
Quarter: 2025Q4

REPORT INFORMATION
  Report Type: Report from Study
  Country: US (occurrence: US)
  Receive Date: 20250820
  Receipt Date: 20251028
  Transmission Date: 20260117
  Serious: Yes (Hospitalization)
  Sender: ABBVIE
  Company Number: US-ABBVIE-6420136

PATIENT
  Sex: Female

DRUGS (1)
  1. RINVOQ [Suspect]
     Active Substance: UPADACITINIB
     Indication: Dermatitis atopic
     Route: 048

REACTIONS (6)
  - Skin infection [Recovering/Resolving]
  - Peritoneal catheter insertion [Unknown]
  - Pneumonia [Recovering/Resolving]
  - Blood glucose decreased [Recovering/Resolving]
  - Anaemia [Recovering/Resolving]
  - Incorrect dose administered [Unknown]
